FAERS Safety Report 5765199-3 (Version None)
Quarter: 2008Q2

REPORT INFORMATION
  Report Type: 
  Country: None (occurrence: None)
  Receive Date: 20080611
  Receipt Date: 20080602
  Transmission Date: 20081010
  Serious: Yes (Hospitalization)
  Sender: FDA-Public Use
  Company Number: DE-AMGEN-US275527

PATIENT
  Sex: Male
  Weight: 15 kg

DRUGS (6)
  1. ENBREL [Suspect]
     Indication: JUVENILE ARTHRITIS
     Route: 058
     Dates: start: 20080101, end: 20080201
  2. ENBREL [Suspect]
     Route: 058
     Dates: start: 20080101, end: 20080301
  3. DECORTIN [Concomitant]
     Indication: JUVENILE ARTHRITIS
     Route: 048
     Dates: start: 20070701, end: 20080301
  4. INDOMETHACIN [Concomitant]
     Indication: JUVENILE ARTHRITIS
     Route: 048
     Dates: start: 20070501, end: 20080301
  5. LANTAREL [Concomitant]
     Indication: JUVENILE ARTHRITIS
     Route: 058
     Dates: start: 20070828, end: 20080201
  6. LANTAREL [Concomitant]
     Route: 058
     Dates: start: 20080101, end: 20080301

REACTIONS (11)
  - ABDOMINAL PAIN [None]
  - ACUTE LYMPHOCYTIC LEUKAEMIA [None]
  - ARTHRALGIA [None]
  - BRONCHITIS [None]
  - CHEST PAIN [None]
  - HEPATOSPLENOMEGALY [None]
  - IRRITABILITY [None]
  - LYMPHADENOPATHY [None]
  - MALAISE [None]
  - PYREXIA [None]
  - SWELLING FACE [None]
